FAERS Safety Report 9525299 (Version 1)
Quarter: 2013Q3

REPORT INFORMATION
  Report Type: Spontaneous
  Country: US (occurrence: US)
  Receive Date: 20130916
  Receipt Date: 20130916
  Transmission Date: 20140515
  Serious: Yes (Other)
  Sender: FDA-Public Use
  Company Number: US-BAYER-2013-110964

PATIENT
  Sex: Female

DRUGS (3)
  1. ALEVE CAPLET [Suspect]
     Indication: MIGRAINE
  2. IBUPROFEN [Suspect]
     Indication: MIGRAINE
  3. EXCEDRIN [ACETYLSALICYLIC ACID,CAFFEINE,PARACETAMOL,SALICYLAMIDE] [Suspect]
     Indication: MIGRAINE

REACTIONS (2)
  - Gastric ulcer [None]
  - Abdominal pain upper [None]
